FAERS Safety Report 4800900-4 (Version None)
Quarter: 2005Q4

REPORT INFORMATION
  Report Type: 
  Country: None (occurrence: None)
  Receive Date: 20051011
  Receipt Date: 20050928
  Transmission Date: 20060501
  Serious: Yes (Other)
  Sender: FDA-Public Use
  Company Number: L05-JPN-03571-00

PATIENT
  Age: 7 Year
  Sex: Female

DRUGS (3)
  1. CARBAMAZEPINE [Suspect]
     Indication: EPILEPSY
  2. CARBAMAZEPINE [Suspect]
     Indication: EPILEPSY
     Dosage: 300 MG QD
  3. VALPROIC ACID [Concomitant]

REACTIONS (1)
  - MYOCLONIC EPILEPSY [None]
